FAERS Safety Report 11821021 (Version 1)
Quarter: 2015Q4

REPORT INFORMATION
  Report Type: Spontaneous
  Country: US (occurrence: US)
  Receive Date: 20151210
  Receipt Date: 20151210
  Transmission Date: 20160305
  Serious: No
  Sender: FDA-Public Use
  Company Number: US-JNJFOC-20150621939

PATIENT
  Sex: Male

DRUGS (4)
  1. IRON [Concomitant]
     Active Substance: IRON
  2. CENTRUM (MINERALS NOS, VITAMINS NOS) [Concomitant]
  3. IMBRUVICA [Suspect]
     Active Substance: IBRUTINIB
     Indication: LYMPHOMA
     Route: 048
  4. IMBRUVICA [Suspect]
     Active Substance: IBRUTINIB
     Indication: LYMPHOMA
     Route: 048
     Dates: start: 20140212

REACTIONS (3)
  - Headache [Unknown]
  - Fatigue [Unknown]
  - Activities of daily living impaired [Unknown]
